FAERS Safety Report 20674988 (Version 1)
Quarter: 2022Q2

REPORT INFORMATION
  Report Type: Spontaneous
  Country: US (occurrence: None)
  Receive Date: 20220404
  Receipt Date: 20220404
  Transmission Date: 20220721
  Serious: Yes (Hospitalization, Disabling)
  Sender: FDA-Public Use
  Company Number: None

PATIENT
  Age: 43 Year
  Sex: Female
  Weight: 56.25 kg

DRUGS (1)
  1. HUMIRA [Suspect]
     Active Substance: ADALIMUMAB
     Indication: Psoriasis
     Route: 058
     Dates: start: 20211218, end: 20220212

REACTIONS (5)
  - Dermal cyst [None]
  - Pain [None]
  - Loss of personal independence in daily activities [None]
  - Infection [None]
  - Cardiac disorder [None]

NARRATIVE: CASE EVENT DATE: 20220216
